FAERS Safety Report 6633887-2 (Version None)
Quarter: 2010Q1

REPORT INFORMATION
  Report Type: 
  Country: None (occurrence: None)
  Receive Date: 20100309
  Receipt Date: 20100222
  Transmission Date: 20100710
  Serious: Yes (Other)
  Sender: FDA-Public Use
  Company Number: 2010000637

PATIENT
  Age: 62 Year
  Sex: Male
  Weight: 43 kg

DRUGS (2)
  1. ERLOTINIB HYDROCHLORIDE [Suspect]
     Indication: LUNG ADENOCARCINOMA
     Dosage: (150 MG,QD), ORAL
     Route: 048
     Dates: start: 20090715, end: 20090815
  2. FAMOTIDINE [Concomitant]

REACTIONS (5)
  - INTESTINAL OBSTRUCTION [None]
  - LUNG ADENOCARCINOMA METASTATIC [None]
  - MALIGNANT NEOPLASM PROGRESSION [None]
  - PARONYCHIA [None]
  - RASH [None]
